FAERS Safety Report 15084181 (Version 2)
Quarter: 2018Q3

REPORT INFORMATION
  Report Type: Spontaneous
  Country: DE (occurrence: DE)
  Receive Date: 20180628
  Receipt Date: 20180713
  Transmission Date: 20181010
  Serious: Yes (Hospitalization, Other)
  Sender: FDA-Public Use
  Company Number: DE-SA-2018SA152708

PATIENT
  Age: 47 Year
  Sex: Female
  Weight: 59.6 kg

DRUGS (33)
  1. FOLINIC ACID [Concomitant]
     Active Substance: LEUCOVORIN
     Indication: COLORECTAL CANCER
     Dosage: 336 UNK
     Dates: start: 20131108, end: 20131108
  2. TARGIN [Concomitant]
     Active Substance: NALOXONE HYDROCHLORIDE\OXYCODONE HYDROCHLORIDE
     Indication: PROCEDURAL PAIN
     Route: 065
     Dates: start: 20140628, end: 20140704
  3. OXALIPLATIN. [Suspect]
     Active Substance: OXALIPLATIN
     Dosage: 137.7 MG
     Dates: start: 20140102, end: 20140102
  4. BEVACIZUMAB. [Suspect]
     Active Substance: BEVACIZUMAB
     Indication: COLORECTAL CANCER METASTATIC
     Dosage: 298 MG
     Route: 042
     Dates: start: 20131108, end: 20131108
  5. CLEXANE [Concomitant]
     Active Substance: ENOXAPARIN SODIUM
     Indication: THROMBOSIS PROPHYLAXIS
     Route: 065
     Dates: start: 20140623, end: 20140707
  6. DIPIDOLOR [Concomitant]
     Active Substance: PIRITRAMIDE
     Indication: PROCEDURAL PAIN
     Route: 065
     Dates: start: 20140625, end: 20140630
  7. BEVACIZUMAB. [Suspect]
     Active Substance: BEVACIZUMAB
     Dosage: 275 MG
     Route: 042
     Dates: start: 20140102, end: 20140825
  8. IRINOTECAN [Suspect]
     Active Substance: IRINOTECAN
     Dosage: 103.27 MG
     Route: 065
     Dates: start: 20140728, end: 20140728
  9. BISOPROLOL [Concomitant]
     Active Substance: BISOPROLOL
     Indication: HYPERTENSION
     Dosage: 5 MG
     Dates: start: 20140312, end: 20140613
  10. ROXITHROMYCIN [Concomitant]
     Active Substance: ROXITHROMYCIN
     Indication: FEBRILE INFECTION
     Route: 065
     Dates: start: 20140124, end: 20140129
  11. LEVOFLOXACIN. [Concomitant]
     Active Substance: LEVOFLOXACIN
     Indication: PYREXIA
     Route: 065
     Dates: start: 20140120, end: 20140122
  12. OXALIPLATIN. [Suspect]
     Active Substance: OXALIPLATIN
     Dosage: 137.7 MG
     Route: 065
     Dates: start: 20140728, end: 20140728
  13. IRINOTECAN [Suspect]
     Active Substance: IRINOTECAN
     Indication: COLORECTAL CANCER
     Dosage: 277.2 MG
     Dates: start: 20131108, end: 20131108
  14. NOVALGIN (METAMIZOLE SODIUM) [Concomitant]
     Active Substance: METAMIZOLE SODIUM
     Indication: PROCEDURAL PAIN
     Route: 065
     Dates: start: 20140625, end: 20140701
  15. TRAMAL LONG [Concomitant]
     Active Substance: TRAMADOL
     Indication: PROCEDURAL PAIN
     Route: 065
     Dates: start: 20140704, end: 20140705
  16. ACIC [ACICLOVIR] [Concomitant]
     Indication: ORAL HERPES
     Route: 065
     Dates: start: 20140115, end: 20140120
  17. BERODUAL [Concomitant]
     Active Substance: FENOTEROL HYDROBROMIDE\IPRATROPIUM BROMIDE
     Indication: PNEUMONITIS
     Route: 065
     Dates: start: 20140124, end: 20140201
  18. OXALIPLATIN. [Suspect]
     Active Substance: OXALIPLATIN
     Indication: COLORECTAL CANCER
     Dosage: 142.8 MG
     Dates: start: 20131108, end: 20131108
  19. 5?FLUOROURACIL [FLUOROURACIL] [Concomitant]
     Dosage: 2592 MG
     Route: 041
     Dates: start: 20140825, end: 20140827
  20. PANTOZOL [PANTOPRAZOLE SODIUM SESQUIHYDRATE] [Concomitant]
     Indication: PRODUCT USED FOR UNKNOWN INDICATION
     Dosage: UNK
     Route: 065
     Dates: start: 20140125, end: 20140201
  21. FOLINIC ACID [Concomitant]
     Active Substance: LEUCOVORIN
     Dosage: 162 UNK
     Dates: start: 20140825, end: 20140825
  22. 5?FLUOROURACIL [FLUOROURACIL] [Concomitant]
     Dosage: 5184 UNK
     Route: 041
     Dates: start: 20131125, end: 20140416
  23. FOLINIC ACID [Concomitant]
     Active Substance: LEUCOVORIN
     Dosage: 324 MG
     Route: 065
     Dates: start: 20131125, end: 20140414
  24. FOLINIC ACID [Concomitant]
     Active Substance: LEUCOVORIN
     Dosage: 243 UNK
     Dates: start: 20140714, end: 20140728
  25. BISOPROLOL [Concomitant]
     Active Substance: BISOPROLOL
     Dosage: 2.5 MG
     Route: 065
     Dates: start: 20140614, end: 20140710
  26. TAVOR (LORAZEPAM) [Concomitant]
     Active Substance: LORAZEPAM
     Indication: DEPRESSED MOOD
     Route: 065
     Dates: start: 20140130, end: 20140130
  27. BROMAZANIL [Concomitant]
     Active Substance: BROMAZEPAM
     Indication: SLEEP DISORDER
     Route: 065
     Dates: start: 20140126, end: 20140126
  28. RAMIPRIL. [Concomitant]
     Active Substance: RAMIPRIL
     Indication: HYPERTENSION
     Route: 065
     Dates: start: 20140306, end: 20140613
  29. 5?FLUOROURACIL [FLUOROURACIL] [Concomitant]
     Indication: COLORECTAL CANCER
     Dosage: 5376 UNK
     Route: 041
     Dates: start: 20131108, end: 20131110
  30. 5?FLUOROURACIL [FLUOROURACIL] [Concomitant]
     Dosage: 3888 UNK
     Route: 041
     Dates: start: 20140714, end: 20140730
  31. PIPERACILLIN/TAZOBACTAM [Concomitant]
     Active Substance: PIPERACILLIN SODIUM\TAZOBACTAM SODIUM
     Indication: FEBRILE INFECTION
     Route: 065
     Dates: start: 20140123, end: 20140129
  32. PANTOZOL [PANTOPRAZOLE SODIUM SESQUIHYDRATE] [Concomitant]
     Dosage: UNK
     Dates: start: 20140623, end: 20140704
  33. ERYTHROCYTES [Concomitant]
     Active Substance: HUMAN RED BLOOD CELL
     Indication: SURGERY
     Route: 065
     Dates: start: 20140625, end: 20140625

REACTIONS (5)
  - Hepatitis toxic [Recovering/Resolving]
  - Pleural effusion [Not Recovered/Not Resolved]
  - Pyrexia [Recovered/Resolved]
  - Peripheral sensory neuropathy [Recovered/Resolved]
  - Infection [Recovered/Resolved]

NARRATIVE: CASE EVENT DATE: 20140102
